FAERS Safety Report 5422156-4 (Version None)
Quarter: 2007Q3

REPORT INFORMATION
  Report Type: 
  Country: None (occurrence: None)
  Receive Date: 20070821
  Receipt Date: 20070821
  Transmission Date: 20080115
  Serious: Yes (Life-Threatening, Hospitalization)
  Sender: FDA-Public Use
  Company Number: None

PATIENT
  Age: 20 Year

DRUGS (1)
  1. SUCCINYLCHOLINE CHLORIDE [Suspect]

REACTIONS (3)
  - ANAPHYLACTIC REACTION [None]
  - DELAYED RECOVERY FROM ANAESTHESIA [None]
  - PSEUDOCHOLINESTERASE DEFICIENCY [None]
